FAERS Safety Report 6973020-0 (Version None)
Quarter: 2010Q3

REPORT INFORMATION
  Report Type: 
  Country: None (occurrence: None)
  Receive Date: 20100909
  Receipt Date: 20100901
  Transmission Date: 20110219
  Serious: Yes (Congenital Anomaly)
  Sender: FDA-Public Use
  Company Number: DE-ASTRAZENECA-2010SE41131

PATIENT

DRUGS (2)
  1. SEROQUEL [Suspect]
     Indication: BIPOLAR DISORDER
     Dosage: 200 MG, UNKNOWN, BEGIN OF GRAVIDITY UNTIL NOW
     Route: 064
     Dates: start: 20100101
  2. VALPROAT [Suspect]
     Indication: BIPOLAR DISORDER
     Dosage: 600 MG, UNKNOWN, BEGIN OF GRAVIDITY UNTIL 5./6. PREGNANCY WEEK
     Route: 064
     Dates: start: 20100101

REACTIONS (1)
  - CLEFT LIP AND PALATE [None]
